FAERS Safety Report 7396294-3 (Version None)
Quarter: 2011Q2

REPORT INFORMATION
  Report Type: 
  Country: None (occurrence: None)
  Receive Date: 20110406
  Receipt Date: 20110331
  Transmission Date: 20111010
  Serious: Yes (Other)
  Sender: FDA-Public Use
  Company Number: US-JNJFOC-20110401221

PATIENT
  Sex: Female
  Weight: 50.8 kg

DRUGS (9)
  1. ATROVENT [Concomitant]
     Indication: ASTHMA
     Route: 065
  2. LEVAQUIN [Suspect]
     Indication: URINARY TRACT INFECTION
     Route: 048
  3. LEVAQUIN [Suspect]
     Indication: SINUSITIS
     Route: 048
  4. NASACORT [Concomitant]
     Indication: ASTHMA
     Route: 065
  5. LEVAQUIN [Suspect]
     Indication: KIDNEY INFECTION
     Route: 048
  6. BENADRYL [Concomitant]
     Indication: MULTIPLE ALLERGIES
     Route: 065
  7. ADVAIR DISKUS 100/50 [Concomitant]
     Indication: ASTHMA
     Route: 065
  8. ALLEGRA [Concomitant]
     Indication: MULTIPLE ALLERGIES
     Route: 065
  9. XOPENEX [Concomitant]
     Indication: ASTHMA
     Route: 065

REACTIONS (14)
  - ARTHRALGIA [None]
  - BONE PAIN [None]
  - DECREASED APPETITE [None]
  - NAUSEA [None]
  - PHOTOPHOBIA [None]
  - WEIGHT BEARING DIFFICULTY [None]
  - URINE KETONE BODY PRESENT [None]
  - PAIN IN EXTREMITY [None]
  - VOMITING [None]
  - PAIN [None]
  - HEADACHE [None]
  - ABASIA [None]
  - MUSCULAR WEAKNESS [None]
  - ABDOMINAL TENDERNESS [None]
